FAERS Safety Report 13627520 (Version 2)
Quarter: 2017Q2

REPORT INFORMATION
  Report Type: Report from Study
  Country: US (occurrence: US)
  Receive Date: 20170608
  Receipt Date: 20170621
  Transmission Date: 20170830
  Serious: Yes (Other)
  Sender: FDA-Public Use
  Company Number: US-JNJFOC-20170602482

PATIENT
  Sex: Female
  Weight: 56.7 kg

DRUGS (8)
  1. NORCO [Concomitant]
     Active Substance: ACETAMINOPHEN\HYDROCODONE BITARTRATE
     Indication: ARTHRALGIA
     Dosage: 4 TIMES A DAY AS NEEDED
     Route: 065
  2. VITAMIN B6 [Concomitant]
     Active Substance: PYRIDOXINE HYDROCHLORIDE
     Route: 065
  3. VITAMIN-A [Concomitant]
     Active Substance: VITAMIN A
     Route: 065
  4. OPIUM TINCTURE [Concomitant]
     Active Substance: MORPHINE
     Indication: SHORT-BOWEL SYNDROME
     Route: 065
  5. VITAMIN B12 [Concomitant]
     Active Substance: CYANOCOBALAMIN
     Route: 065
  6. VITAMIN D [Concomitant]
     Active Substance: CHOLECALCIFEROL
     Dosage: 50,000 UNITS
     Route: 065
  7. REMICADE [Suspect]
     Active Substance: INFLIXIMAB
     Indication: CROHN^S DISEASE
     Dosage: EVERY 8 OR 12 WEEKS
     Route: 042
     Dates: start: 2014, end: 2015
  8. VITAMIN C [Concomitant]
     Active Substance: ASCORBIC ACID
     Route: 065

REACTIONS (7)
  - Fistula [Not Recovered/Not Resolved]
  - Paraesthesia [Recovered/Resolved]
  - Abscess [Unknown]
  - Product use issue [Unknown]
  - Lupus-like syndrome [Unknown]
  - Crohn^s disease [Not Recovered/Not Resolved]
  - Off label use [Unknown]

NARRATIVE: CASE EVENT DATE: 2014
